FAERS Safety Report 4458292-9 (Version None)
Quarter: 2004Q3

REPORT INFORMATION
  Report Type: 
  Country: None (occurrence: None)
  Receive Date: 20040924
  Receipt Date: 20040921
  Transmission Date: 20050211
  Serious: Yes (Death)
  Sender: FDA-Public Use
  Company Number: PHBS2004BR12493

PATIENT
  Age: 49 Year
  Sex: Male
  Weight: 123 kg

DRUGS (1)
  1. GLEEVEC [Suspect]
     Indication: CHRONIC MYELOID LEUKAEMIA
     Route: 048
     Dates: start: 20010101, end: 20010101

REACTIONS (1)
  - DEATH [None]
